FAERS Safety Report 9148915 (Version 1)
Quarter: 2013Q1

REPORT INFORMATION
  Report Type: Spontaneous
  Country: US (occurrence: None)
  Receive Date: 20130227
  Receipt Date: 20130227
  Transmission Date: 20140127
  Serious: Yes (Life-Threatening)
  Sender: FDA-Public Use
  Company Number: None

PATIENT
  Sex: Female
  Weight: 104.33 kg

DRUGS (2)
  1. BYETTA [Suspect]
     Dosage: 5 MCG 2X DAILY SQ
     Route: 058
  2. BYETTA [Suspect]
     Dosage: 5 MCG 2X DAILY SQ
     Route: 058

REACTIONS (1)
  - Vasculitis [None]
